FAERS Safety Report 22748837 (Version 4)
Quarter: 2023Q4

REPORT INFORMATION
  Report Type: Spontaneous
  Country: US (occurrence: US)
  Receive Date: 20230725
  Receipt Date: 20231201
  Transmission Date: 20240110
  Serious: Yes (Other)
  Sender: FDA-Public Use
  Company Number: US-PFIZER INC-PV202300114157

PATIENT
  Age: 76 Year
  Sex: Female

DRUGS (5)
  1. INLYTA [Suspect]
     Active Substance: AXITINIB
     Indication: Renal cancer
     Dosage: 5 MG
  2. INLYTA [Suspect]
     Active Substance: AXITINIB
     Dosage: 7 MG, 2X/DAY
     Route: 048
  3. INLYTA [Suspect]
     Active Substance: AXITINIB
     Dosage: 6 MG, 2X/DAY
  4. INLYTA [Suspect]
     Active Substance: AXITINIB
     Dosage: 5 MG
  5. INLYTA [Suspect]
     Active Substance: AXITINIB
     Dosage: 1 MG

REACTIONS (5)
  - Diabetes mellitus [Unknown]
  - Neoplasm progression [Unknown]
  - Blood iron decreased [Unknown]
  - Fungal infection [Unknown]
  - Product prescribing error [Unknown]
